FAERS Safety Report 13944669 (Version 1)
Quarter: 2017Q3

REPORT INFORMATION
  Report Type: Spontaneous
  Country: US (occurrence: US)
  Receive Date: 20170907
  Receipt Date: 20170907
  Transmission Date: 20171128
  Serious: No
  Sender: FDA-Public Use
  Company Number: US-ROCHE-1290268

PATIENT
  Age: 52 Year
  Sex: Male

DRUGS (1)
  1. RITUXAN [Suspect]
     Active Substance: RITUXIMAB
     Indication: CHRONIC LYMPHOCYTIC LEUKAEMIA RECURRENT
     Dosage: X 4 WEEKS
     Route: 065

REACTIONS (3)
  - White blood cell count increased [Unknown]
  - Rash [Not Recovered/Not Resolved]
  - Back pain [Not Recovered/Not Resolved]
